FAERS Safety Report 7087859-7 (Version None)
Quarter: 2010Q4

REPORT INFORMATION
  Report Type: 
  Country: None (occurrence: None)
  Receive Date: 20101108
  Receipt Date: 20101027
  Transmission Date: 20110411
  Serious: Yes (Other)
  Sender: FDA-Public Use
  Company Number: PT-JNJFOC-20101007383

PATIENT
  Age: 9 Year
  Sex: Male
  Weight: 39 kg

DRUGS (1)
  1. RISPERDAL [Suspect]
     Indication: EMOTIONAL DISORDER
     Route: 048

REACTIONS (4)
  - AGITATION [None]
  - EMOTIONAL DISORDER [None]
  - PRODUCT ODOUR ABNORMAL [None]
  - SUICIDE ATTEMPT [None]
